FAERS Safety Report 8775956 (Version 2)
Quarter: 2012Q4

REPORT INFORMATION
  Report Type: 
  Country: IT (occurrence: IT)
  Receive Date: 20120910
  Receipt Date: 20121128
  Transmission Date: 20130627
  Serious: Yes (Other)
  Sender: FDA-Public Use
  Company Number: IT-MILLENNIUM PHARMACEUTICALS, INC.-2012-06157

PATIENT

DRUGS (5)
  1. VELCADE [Suspect]
     Indication: MULTIPLE MYELOMA
     Dosage: 1.3 mg/m2, Cyclic
  2. BENDAMUSTINE [Suspect]
     Indication: MULTIPLE MYELOMA
     Dosage: 70 mg/m2, Cyclic
  3. DEXAMETHASONE [Suspect]
     Indication: MULTIPLE MYELOMA
     Dosage: 20 mg, Cyclic
  4. ACYCLOVIR                          /00587301/ [Concomitant]
     Indication: PROPHYLAXIS
  5. BACTRIM DS [Concomitant]
     Indication: PROPHYLAXIS

REACTIONS (1)
  - Cardiotoxicity [Unknown]
